FAERS Safety Report 9592942 (Version 1)
Quarter: 2013Q4

REPORT INFORMATION
  Report Type: Report from Study
  Country: BR (occurrence: BR)
  Receive Date: 20131004
  Receipt Date: 20131004
  Transmission Date: 20140711
  Serious: Yes (Hospitalization, Other)
  Sender: FDA-Public Use
  Company Number: PHHY2013BR110354

PATIENT
  Age: 71 Year
  Sex: Female

DRUGS (1)
  1. BUDESONIDE, FORMOTEROL FUMARATE [Suspect]
     Dosage: 1 DF, BID

REACTIONS (20)
  - Respiratory failure [Unknown]
  - Atrial fibrillation [Unknown]
  - Condition aggravated [Unknown]
  - Emphysema [Unknown]
  - Hypertension [Unknown]
  - Fatigue [Unknown]
  - Dyspnoea [Unknown]
  - Productive cough [Unknown]
  - Wheezing [Unknown]
  - Oxygen saturation decreased [Unknown]
  - Breath sounds abnormal [Unknown]
  - Obstructive airways disorder [Unknown]
  - Functional residual capacity decreased [Unknown]
  - Heart sounds abnormal [Unknown]
  - Diastolic dysfunction [Unknown]
  - Electrocardiogram repolarisation abnormality [Unknown]
  - Heart rate increased [Unknown]
  - Computerised tomogram coronary artery abnormal [Unknown]
  - Cold sweat [Unknown]
  - Asthenia [Unknown]
